FAERS Safety Report 9866473 (Version 3)
Quarter: 2014Q1

REPORT INFORMATION
  Report Type: Spontaneous
  Country: IE (occurrence: IE)
  Receive Date: 20140204
  Receipt Date: 20140220
  Transmission Date: 20141002
  Serious: Yes (Death)
  Sender: FDA-Public Use
  Company Number: IE-AMGEN-IRLSP2013077566

PATIENT
  Age: 85 Year
  Sex: Male

DRUGS (1)
  1. ARANESP [Suspect]
     Indication: RENAL FAILURE CHRONIC
     Dosage: 30 MUG, QWK
     Route: 058
     Dates: start: 20120305

REACTIONS (3)
  - Renal failure chronic [Fatal]
  - Haemoglobin decreased [Unknown]
  - Hypotension [Unknown]
